FAERS Safety Report 7281471-2 (Version None)
Quarter: 2011Q1

REPORT INFORMATION
  Report Type: 
  Country: None (occurrence: None)
  Receive Date: 20110127
  Receipt Date: 20110121
  Transmission Date: 20110831
  Serious: Yes (Hospitalization, Other)
  Sender: FDA-Public Use
  Company Number: 20109044

PATIENT
  Sex: Male

DRUGS (1)
  1. LIORESAL [Suspect]
     Indication: MUSCLE SPASTICITY
     Dosage: DAILY,INTRATHECAL
     Route: 037

REACTIONS (9)
  - MUSCLE SPASTICITY [None]
  - CLONUS [None]
  - IRRITABILITY [None]
  - PRURITUS [None]
  - CONDITION AGGRAVATED [None]
  - WITHDRAWAL SYNDROME [None]
  - MUSCLE SPASMS [None]
  - DEVICE BREAKAGE [None]
  - RASH [None]
